FAERS Safety Report 10341734 (Version 3)
Quarter: 2014Q4

REPORT INFORMATION
  Report Type: Spontaneous
  Country: US (occurrence: None)
  Receive Date: 20140723
  Receipt Date: 20141010
  Transmission Date: 20150528
  Serious: Yes (Hospitalization)
  Sender: FDA-Public Use
  Company Number: UNT-2014-003765

PATIENT
  Age: 10 Year
  Sex: Male
  Weight: 12.7 kg

DRUGS (3)
  1. REMODULIN [Suspect]
     Active Substance: TREPROSTINIL
     Indication: COR PULMONALE CHRONIC
     Route: 041
     Dates: start: 20111016
  2. REMODULIN [Suspect]
     Active Substance: TREPROSTINIL
     Indication: PULMONARY HYPERTENSION
     Route: 041
     Dates: start: 20111016
  3. REVATIO (SILDENAFIL CITRATE) [Concomitant]

REACTIONS (2)
  - Injection site infection [None]
  - Wound infection staphylococcal [None]

NARRATIVE: CASE EVENT DATE: 20140704
